FAERS Safety Report 24783711 (Version 2)
Quarter: 2025Q1

REPORT INFORMATION
  Report Type: Report from Study
  Country: US (occurrence: US)
  Receive Date: 20241227
  Receipt Date: 20250122
  Transmission Date: 20250408
  Serious: Yes (Other)
  Sender: ALEXION PHARMACEUTICALS
  Company Number: US-AstraZeneca-CH-00774550A

PATIENT

DRUGS (1)
  1. ACALABRUTINIB [Suspect]
     Active Substance: ACALABRUTINIB
     Route: 065

REACTIONS (5)
  - Tumour lysis syndrome [Recovering/Resolving]
  - Platelet count decreased [Recovering/Resolving]
  - Contusion [Recovering/Resolving]
  - Asthenia [Recovering/Resolving]
  - Fatigue [Recovering/Resolving]
